FAERS Safety Report 16373145 (Version 1)
Quarter: 2019Q2

REPORT INFORMATION
  Report Type: Spontaneous
  Country: DK (occurrence: DK)
  Receive Date: 20190530
  Receipt Date: 20190530
  Transmission Date: 20190711
  Serious: Yes (Death)
  Sender: FDA-Public Use
  Company Number: DK-TEVA-2019-DK-1056025

PATIENT
  Age: 42 Year
  Sex: Female

DRUGS (9)
  1. METOCLOPRAMIDE ^ACCORD^ [Suspect]
     Active Substance: METOCLOPRAMIDE HYDROCHLORIDE
     Indication: VOMITING
     Dosage: STYRKE: 10 MG. DOSIS: 1 TABLET PN., H?JST 3 GANGE DAGLIGT.
     Route: 048
     Dates: start: 20140829
  2. KETOGAN [DIMETHYL-3,3-DIPHENYL-1-METHYLALLYLAMINE HCL;KETOBEMIDONE HYDROCHLORIDE] [Suspect]
     Active Substance: DIMETHYLAMINODIPHENYLBUTENE HYDROCHLORIDE\KETOBEMIDONE HYDROCHLORIDE
     Indication: PAIN
     Dosage: STYRKE: 5 + 25 MG. DOSIS: 1 TABLET PN., H?JST 3 GANGE DAGLIGT.
     Route: 048
     Dates: start: 20141114
  3. LAMOTRIGINE. [Concomitant]
     Active Substance: LAMOTRIGINE
     Indication: PAIN
     Dosage: STYRKE: 50 MG.
     Route: 048
     Dates: start: 20141008
  4. VERAPAMIL ^HEXAL^ [Suspect]
     Active Substance: VERAPAMIL HYDROCHLORIDE
     Indication: CLUSTER HEADACHE
     Dosage: STYRKE: 80 MG.
     Route: 048
     Dates: start: 20170919
  5. CLONAZEPAM. [Suspect]
     Active Substance: CLONAZEPAM
     Indication: PRODUCT USED FOR UNKNOWN INDICATION
     Dosage: DOSIS: UKENDT. STYRKE: UKENDT.
     Route: 048
  6. NORITREN [Suspect]
     Active Substance: NORTRIPTYLINE HYDROCHLORIDE
     Indication: DEPRESSION
     Dosage: STYRKE: 50 MG.
     Route: 048
     Dates: start: 20140121
  7. TRAMADOL AUROBINDO [Suspect]
     Active Substance: TRAMADOL HYDROCHLORIDE
     Indication: PAIN
     Dosage: STYRKE: 50 MG. DOSIS: 1 KAPSEL PN., H?JST 3 GANGE DALIGT.
     Route: 048
  8. AMITRIPTYLIN ^DAK^ [Suspect]
     Active Substance: AMITRIPTYLINE
     Indication: DEPRESSION
     Dosage: STYRKE: 50 MG.
     Route: 048
     Dates: start: 20140617
  9. PREGABALIN. [Suspect]
     Active Substance: PREGABALIN
     Indication: ANXIETY
     Dosage: STYRKE: 150 MG.
     Route: 048
     Dates: start: 20160708

REACTIONS (3)
  - Respiratory depression [Fatal]
  - Sedation [Fatal]
  - Toxicity to various agents [Fatal]

NARRATIVE: CASE EVENT DATE: 20190303
